FAERS Safety Report 7501558-6 (Version None)
Quarter: 2011Q2

REPORT INFORMATION
  Report Type: 
  Country: None (occurrence: None)
  Receive Date: 20110524
  Receipt Date: 20110518
  Transmission Date: 20111010
  Serious: Yes (Congenital Anomaly)
  Sender: FDA-Public Use
  Company Number: US-GILEAD-2011-0035396

PATIENT
  Sex: Female
  Weight: 2.08 kg

DRUGS (6)
  1. REYATAZ [Concomitant]
     Indication: HIV INFECTION
     Route: 064
     Dates: start: 20100129
  2. COMBIVIR [Concomitant]
     Indication: HIV INFECTION
     Route: 064
     Dates: start: 20100727, end: 20101020
  3. NORVIR [Concomitant]
     Indication: HIV INFECTION
     Route: 064
     Dates: start: 20101021
  4. TRUVADA [Suspect]
     Indication: HIV INFECTION
     Route: 064
     Dates: start: 20101021
  5. KALETRA [Concomitant]
     Indication: HIV INFECTION
     Route: 064
     Dates: start: 20100727, end: 20101020
  6. REYATAZ [Concomitant]
     Route: 064
     Dates: start: 20101021, end: 20110128

REACTIONS (5)
  - ULTRASOUND ANTENATAL SCREEN ABNORMAL [None]
  - VENTRICULAR SEPTAL DEFECT [None]
  - ATRIAL SEPTAL DEFECT [None]
  - PATENT DUCTUS ARTERIOSUS [None]
  - LEFT ATRIAL DILATATION [None]
